FAERS Safety Report 8261658-2 (Version None)
Quarter: 2012Q2

REPORT INFORMATION
  Report Type: 
  Country: None (occurrence: None)
  Receive Date: 20120405
  Receipt Date: 20120405
  Transmission Date: 20120825
  Serious: Yes (Other)
  Sender: FDA-Public Use
  Company Number: None

PATIENT
  Age: 65 Year
  Sex: Female
  Weight: 61.688 kg

DRUGS (1)
  1. RECLAST [Suspect]
     Indication: OSTEOPENIA
     Dosage: INFUSION
     Route: 065
     Dates: start: 20110729, end: 20110729

REACTIONS (7)
  - SYNCOPE [None]
  - INFLAMMATION [None]
  - CHEST DISCOMFORT [None]
  - FALL [None]
  - SPLEEN DISORDER [None]
  - SARCOIDOSIS [None]
  - LYMPHADENITIS [None]
